FAERS Safety Report 8571814-1 (Version None)
Quarter: 2012Q3

REPORT INFORMATION
  Report Type: 
  Country: None (occurrence: None)
  Receive Date: 20120806
  Receipt Date: 20120802
  Transmission Date: 20120928
  Serious: Yes (Other)
  Sender: FDA-Public Use
  Company Number: US-JNJFOC-20120610605

PATIENT
  Sex: Male

DRUGS (5)
  1. XARELTO [Suspect]
     Indication: ATRIAL FIBRILLATION
     Route: 048
     Dates: start: 20120529
  2. XARELTO [Suspect]
     Route: 048
     Dates: start: 20120613
  3. CELEBREX [Concomitant]
     Dates: end: 20120529
  4. XARELTO [Suspect]
     Indication: CEREBROVASCULAR ACCIDENT PROPHYLAXIS
     Route: 048
     Dates: start: 20120613
  5. XARELTO [Suspect]
     Route: 048
     Dates: start: 20120529

REACTIONS (1)
  - CEREBELLAR HAEMORRHAGE [None]
